FAERS Safety Report 5052410-X (Version None)
Quarter: 2006Q3

REPORT INFORMATION
  Report Type: 
  Country: None (occurrence: None)
  Receive Date: 20060717
  Receipt Date: 20060526
  Transmission Date: 20061208
  Serious: Yes (Hospitalization, Other)
  Sender: FDA-Public Use
  Company Number: PHNU2006DE02107

PATIENT
  Sex: Male
  Weight: 80 kg

DRUGS (4)
  1. BLOOD TRANSFUSION, AUXILIARY PRODUCTS [Concomitant]
     Route: 065
  2. DESFERAL [Suspect]
     Indication: HAEMOCHROMATOSIS
     Dosage: 1 G, BID
     Route: 058
     Dates: start: 20050901, end: 20060524
  3. MARCUMAR [Concomitant]
     Dosage: UNK, UNK
     Route: 048
  4. ALLOPURINOL [Concomitant]
     Route: 065

REACTIONS (6)
  - RETINAL DEGENERATION [None]
  - RETINITIS PIGMENTOSA [None]
  - VISION BLURRED [None]
  - VISUAL ACUITY REDUCED [None]
  - VISUAL DISTURBANCE [None]
  - VISUAL FIELD DEFECT [None]
